FAERS Safety Report 13976879 (Version 1)
Quarter: 2017Q3

REPORT INFORMATION
  Report Type: Spontaneous
  Country: US (occurrence: US)
  Receive Date: 20170915
  Receipt Date: 20170915
  Transmission Date: 20171128
  Serious: No
  Sender: FDA-Public Use
  Company Number: US-ROCHE-714483

PATIENT

DRUGS (1)
  1. HERCEPTIN [Suspect]
     Active Substance: TRASTUZUMAB
     Indication: PRODUCT USED FOR UNKNOWN INDICATION
     Route: 065

REACTIONS (10)
  - Angina pectoris [Unknown]
  - White blood cell count increased [Unknown]
  - Waist circumference increased [Unknown]
  - Dizziness [Unknown]
  - Red blood cell count decreased [Unknown]
  - Bone pain [Unknown]
  - Neuropathy peripheral [Unknown]
  - Dyspnoea [Unknown]
  - Onychoclasis [Not Recovered/Not Resolved]
  - Fatigue [Unknown]
